FAERS Safety Report 5402843-4 (Version None)
Quarter: 2007Q3

REPORT INFORMATION
  Report Type: 
  Country: None (occurrence: None)
  Receive Date: 20070727
  Receipt Date: 20060829
  Transmission Date: 20080115
  Serious: Yes (Death, Hospitalization)
  Sender: FDA-Public Use
  Company Number: 6034993

PATIENT
  Age: 77 Year
  Sex: Male

DRUGS (2)
  1. PAROXETINE [Suspect]
     Indication: PSYCHOTIC DISORDER
     Dosage: 20 MG (20 MG, 1 IN 1 D);
  2. CLOZAPINE [Suspect]
     Indication: PSYCHOTIC DISORDER
     Dosage: 1, 5MG (1, 5 MG, 1 IN 1 D)

REACTIONS (13)
  - CARDIO-RESPIRATORY ARREST [None]
  - COAGULOPATHY [None]
  - DIABETIC HYPEROSMOLAR COMA [None]
  - DISSEMINATED INTRAVASCULAR COAGULATION [None]
  - DRUG INEFFECTIVE [None]
  - DRUG INTERACTION [None]
  - ELECTROENCEPHALOGRAM ABNORMAL [None]
  - METABOLIC ALKALOSIS [None]
  - NEUROLEPTIC MALIGNANT SYNDROME [None]
  - PNEUMONIA ASPIRATION [None]
  - PROTHROMBIN TIME PROLONGED [None]
  - RENAL FAILURE [None]
  - RESPIRATORY FAILURE [None]
